FAERS Safety Report 8025769-9 (Version None)
Quarter: 2012Q1

REPORT INFORMATION
  Report Type: 
  Country: None (occurrence: None)
  Receive Date: 20120105
  Receipt Date: 20110817
  Transmission Date: 20120608
  Serious: No
  Sender: FDA-Public Use
  Company Number: US-ABBOTT-11P-163-0847992-00

PATIENT
  Sex: Female
  Weight: 60.382 kg

DRUGS (9)
  1. ASPIRIN [Concomitant]
     Indication: PRODUCT USED FOR UNKNOWN INDICATION
  2. DICYCLOMINE [Concomitant]
     Indication: IRRITABLE BOWEL SYNDROME
     Dates: start: 20110720
  3. ZOLOFT [Concomitant]
     Indication: PRODUCT USED FOR UNKNOWN INDICATION
  4. LITHIUM [Concomitant]
     Indication: BIPOLAR DISORDER
  5. SYNTHROID [Suspect]
     Dates: start: 20110818
  6. SYNTHROID [Suspect]
     Indication: GOITRE
     Route: 048
     Dates: start: 20110815, end: 20110817
  7. SYNTHROID [Suspect]
  8. TOPROL-XL [Concomitant]
     Indication: HYPERTENSION
  9. LIPITOR [Concomitant]
     Indication: PRODUCT USED FOR UNKNOWN INDICATION

REACTIONS (4)
  - FLUSHING [None]
  - BURNING SENSATION [None]
  - HYPERSENSITIVITY [None]
  - EYE IRRITATION [None]
